FAERS Safety Report 4338460-7 (Version None)
Quarter: 2004Q2

REPORT INFORMATION
  Report Type: 
  Country: None (occurrence: None)
  Receive Date: 20040409
  Receipt Date: 20040330
  Transmission Date: 20050107
  Serious: Yes (Hospitalization)
  Sender: FDA-Public Use
  Company Number: DE-JNJFOC-20040305396

PATIENT
  Age: 13 Year
  Sex: Male
  Weight: 43.8 kg

DRUGS (1)
  1. CONCERTA [Suspect]
     Indication: ATTENTION DEFICIT/HYPERACTIVITY DISORDER
     Dosage: 18 MG, IN 1 DAY, ORAL
     Route: 048
     Dates: start: 20030909

REACTIONS (2)
  - ALANINE AMINOTRANSFERASE INCREASED [None]
  - CYANOSIS [None]
